FAERS Safety Report 24298841 (Version 1)
Quarter: 2024Q3

REPORT INFORMATION
  Report Type: Spontaneous
  Country: CN (occurrence: CN)
  Receive Date: 20240909
  Receipt Date: 20240909
  Transmission Date: 20241016
  Serious: Yes (Other)
  Sender: FRESENIUS KABI
  Company Number: CN-FreseniusKabi-FK202413296

PATIENT
  Age: 1 Month
  Sex: Male
  Weight: 1.76 kg

DRUGS (5)
  1. SMOFLIPID [Suspect]
     Active Substance: FISH OIL\MEDIUM-CHAIN TRIGLYCERIDES\OLIVE OIL\SOYBEAN OIL
     Indication: Nutritional supplementation
     Route: 041
     Dates: start: 20240713, end: 20240730
  2. GLYCOPHOS [Suspect]
     Active Substance: SODIUM GLYCEROPHOSPHATE ANHYDROUS
     Indication: Supplementation therapy
     Dosage: FOA: INJECTION
     Route: 041
     Dates: start: 20240714, end: 20240730
  3. AMINO ACIDS, SOURCE UNSPECIFIED [Suspect]
     Active Substance: AMINO ACIDS, SOURCE UNSPECIFIED
     Indication: Nutritional supplementation
     Dosage: FOA: INJECTION
     Route: 041
     Dates: start: 20240712, end: 20240731
  4. DEXTROSE [Suspect]
     Active Substance: DEXTROSE\DEXTROSE MONOHYDRATE
     Indication: Supplementation therapy
     Dosage: FOA: INJECTION
     Route: 041
     Dates: start: 20240712, end: 20240731
  5. DEXTROSE [Suspect]
     Active Substance: DEXTROSE\DEXTROSE MONOHYDRATE
     Indication: Supplementation therapy
     Dosage: FOA: INJECTION
     Route: 041
     Dates: start: 20240712, end: 20240731

REACTIONS (2)
  - Bile acids increased [Unknown]
  - Blood bilirubin increased [Unknown]

NARRATIVE: CASE EVENT DATE: 20240814
